FAERS Safety Report 13489482 (Version 1)
Quarter: 2017Q2

REPORT INFORMATION
  Report Type: Spontaneous
  Country: FR (occurrence: FR)
  Receive Date: 20170427
  Receipt Date: 20170427
  Transmission Date: 20170830
  Serious: Yes (Other)
  Sender: FDA-Public Use
  Company Number: FR-PFIZER INC-2017180789

PATIENT
  Age: 70 Year
  Sex: Female

DRUGS (2)
  1. AMLOR [Suspect]
     Active Substance: AMLODIPINE BESYLATE
     Indication: HYPERTENSION
  2. TAREG [Concomitant]
     Active Substance: VALSARTAN

REACTIONS (5)
  - Haemorrhage [Unknown]
  - Contusion [Unknown]
  - Vasodilatation [Unknown]
  - Platelet count decreased [Unknown]
  - Eye haemorrhage [Unknown]
